FAERS Safety Report 5342440-2 (Version None)
Quarter: 2007Q2

REPORT INFORMATION
  Report Type: 
  Country: None (occurrence: None)
  Receive Date: 20070601
  Receipt Date: 20070410
  Transmission Date: 20071010
  Serious: Yes (Other)
  Sender: FDA-Public Use
  Company Number: US-PFIZER INC-2006108418

PATIENT
  Sex: Male
  Weight: 108.9 kg

DRUGS (3)
  1. CELEBREX [Suspect]
     Indication: BACK PAIN
  2. BEXTRA [Suspect]
     Indication: MUSCLE SPASMS
  3. BEXTRA [Suspect]
     Indication: BACK PAIN

REACTIONS (4)
  - ASTHMA [None]
  - HEART RATE IRREGULAR [None]
  - HYPERTENSION [None]
  - TOXIC EPIDERMAL NECROLYSIS [None]
